FAERS Safety Report 18334896 (Version 1)
Quarter: 2020Q4

REPORT INFORMATION
  Report Type: Spontaneous
  Country: DE (occurrence: DE)
  Receive Date: 20201001
  Receipt Date: 20201001
  Transmission Date: 20210113
  Serious: Yes (Hospitalization, Other)
  Sender: FDA-Public Use
  Company Number: DE-TEVA-2020-DE-1832540

PATIENT
  Age: 78 Year
  Sex: Male
  Weight: 72 kg

DRUGS (3)
  1. TILIDIN [Concomitant]
     Active Substance: NALOXONE HYDROCHLORIDE\TILIDINE HYDROCHLORIDE
     Dosage: REQUIREMENT
  2. IBUPROFEN. [Suspect]
     Active Substance: IBUPROFEN
     Dosage: 2.4 GRAM DAILY; 2.4 G / DAY, SINCE 31-12-2019
  3. BISOPROLOL [Concomitant]
     Active Substance: BISOPROLOL
     Dosage: 2.5 MILLIGRAM DAILY;  1-0-0-0

REACTIONS (8)
  - Fatigue [Unknown]
  - Dysphagia [Unknown]
  - Asthenia [Unknown]
  - Psychomotor retardation [Unknown]
  - Headache [Unknown]
  - Dehydration [Unknown]
  - Fluid intake reduced [Unknown]
  - Chronic kidney disease [Unknown]
